FAERS Safety Report 8046090-9 (Version None)
Quarter: 2012Q1

REPORT INFORMATION
  Report Type: 
  Country: None (occurrence: None)
  Receive Date: 20120113
  Receipt Date: 20120109
  Transmission Date: 20120608
  Serious: No
  Sender: FDA-Public Use
  Company Number: US-PFIZER INC-2012006566

PATIENT
  Sex: Male
  Weight: 83.9 kg

DRUGS (2)
  1. EFFEXOR [Concomitant]
     Dosage: UNK
  2. VIAGRA [Suspect]
     Indication: ERECTILE DYSFUNCTION
     Dosage: 100 MG, AS NEEDED
     Route: 048
     Dates: start: 20090101

REACTIONS (3)
  - EJACULATION FAILURE [None]
  - DRUG INEFFECTIVE [None]
  - ERECTILE DYSFUNCTION [None]
